FAERS Safety Report 5933861-5 (Version None)
Quarter: 2008Q4

REPORT INFORMATION
  Report Type: 
  Country: None (occurrence: None)
  Receive Date: 20081029
  Receipt Date: 20081021
  Transmission Date: 20090506
  Serious: Yes (Hospitalization)
  Sender: FDA-Public Use
  Company Number: FR-WYE-G02398108

PATIENT
  Sex: Female

DRUGS (11)
  1. EFFEXOR [Suspect]
     Indication: DEPRESSION
     Route: 048
     Dates: start: 20080909, end: 20080913
  2. EFFEXOR [Suspect]
     Indication: SUICIDAL IDEATION
     Dosage: 75 MG TOTAL DAILY
     Route: 048
     Dates: start: 20080914, end: 20080916
  3. STAGID [Concomitant]
     Route: 048
     Dates: end: 20080901
  4. STAGID [Concomitant]
     Dosage: UNKNOWN; INCREASED DOSE
     Route: 048
     Dates: start: 20080901
  5. FORLAX [Concomitant]
     Route: 048
     Dates: end: 20080916
  6. BROMAZEPAM [Concomitant]
     Route: 048
     Dates: end: 20080916
  7. LANSOPRAZOLE [Concomitant]
     Route: 048
  8. ZOPICLONE [Concomitant]
     Route: 048
  9. PLAVIX [Concomitant]
     Route: 048
  10. TRIVASTAL [Concomitant]
     Route: 048
     Dates: end: 20080901
  11. TRIVASTAL [Concomitant]
     Route: 048
     Dates: start: 20080901

REACTIONS (4)
  - CONFUSIONAL STATE [None]
  - HYPONATRAEMIA [None]
  - PSYCHOMOTOR RETARDATION [None]
  - URINARY RETENTION [None]
